FAERS Safety Report 6090996-7 (Version None)
Quarter: 2009Q1

REPORT INFORMATION
  Report Type: 
  Country: None (occurrence: None)
  Receive Date: 20090218
  Receipt Date: 20090218
  Transmission Date: 20090719
  Serious: No
  Sender: FDA-Public Use
  Company Number: None

PATIENT
  Sex: Male
  Weight: 129.2752 kg

DRUGS (1)
  1. AVELOX [Suspect]
     Indication: BRONCHITIS
     Dosage: 400MG 1X DAY/5 DAYS 047
     Dates: start: 20090209, end: 20090212

REACTIONS (6)
  - ANXIETY [None]
  - DIARRHOEA [None]
  - FEELING OF DESPAIR [None]
  - HYPERHIDROSIS [None]
  - PSYCHOTIC DISORDER [None]
  - SUICIDAL IDEATION [None]
